FAERS Safety Report 19662042 (Version 1)
Quarter: 2021Q3

REPORT INFORMATION
  Report Type: Spontaneous
  Country: FR (occurrence: FR)
  Receive Date: 20210805
  Receipt Date: 20210805
  Transmission Date: 20211014
  Serious: Yes (Hospitalization)
  Sender: FDA-Public Use
  Company Number: NVSC2021FR171990

PATIENT
  Age: 50 Year
  Sex: Male
  Weight: 63 kg

DRUGS (6)
  1. MICROPAKINE [Suspect]
     Active Substance: VALPROATE SODIUM
     Indication: EPILEPSY
     Dosage: 2000 MG, QD (1000 MGX2/JOUR (2?0?0))
     Route: 048
     Dates: start: 20210101
  2. MICROPAKINE [Suspect]
     Active Substance: VALPROATE SODIUM
     Dosage: 4000 MG, 1 TOTAL
     Route: 048
     Dates: start: 20210518, end: 20210518
  3. RISPERIDONE. [Concomitant]
     Active Substance: RISPERIDONE
     Indication: PSYCHOTIC DISORDER
     Dosage: 1 MG, QD (0?0?1)
     Route: 048
     Dates: start: 20210101
  4. CARBAMAZEPINE. [Suspect]
     Active Substance: CARBAMAZEPINE
     Dosage: 800 MG, QD (400 MG X 2/JOUR (1?0?1))
     Route: 048
     Dates: start: 20210101
  5. CARBAMAZEPINE. [Suspect]
     Active Substance: CARBAMAZEPINE
     Indication: EPILEPSY
     Dosage: 400 MG, QD (200 MG X 2/JOUR (1?0?1))
     Route: 048
     Dates: start: 20210101
  6. CARBAMAZEPINE. [Suspect]
     Active Substance: CARBAMAZEPINE
     Dosage: 1200 MG,1 TOTAL
     Route: 048
     Dates: start: 20210518, end: 20210518

REACTIONS (4)
  - Medication error [Recovered/Resolved]
  - Somnolence [Recovered/Resolved]
  - Incorrect dose administered [Recovered/Resolved]
  - Hypotension [Recovered/Resolved]

NARRATIVE: CASE EVENT DATE: 20210518
